FAERS Safety Report 9209754 (Version 2)
Quarter: 2013Q2

REPORT INFORMATION
  Report Type: Spontaneous
  Country: US (occurrence: US)
  Receive Date: 20130404
  Receipt Date: 20130506
  Transmission Date: 20140414
  Serious: Yes (Hospitalization, Other)
  Sender: FDA-Public Use
  Company Number: US-PFIZER INC-2013104823

PATIENT
  Age: 79 Year
  Sex: Female
  Weight: 83.01 kg

DRUGS (21)
  1. LIPITOR [Suspect]
     Indication: BLOOD CHOLESTEROL INCREASED
     Dosage: 10 MG, 1X/DAY
     Route: 048
  2. LIPITOR [Suspect]
     Indication: ARTERIOSCLEROSIS
     Dosage: 40 MG, 1X/DAY
     Route: 048
     Dates: start: 20041105
  3. LIPITOR [Suspect]
     Indication: TRANSIENT ISCHAEMIC ATTACK
  4. FOSAMAX [Concomitant]
     Dosage: 35 MG, UNK
     Route: 048
  5. FOSAMAX [Concomitant]
     Dosage: 70 MG, WEEKLY
     Route: 048
  6. DIOVAN [Concomitant]
     Dosage: 80 MG, UNK
     Route: 048
  7. DIOVAN [Concomitant]
     Dosage: 160 MG, ONCE DAILY
     Route: 048
  8. ASPIRIN [Concomitant]
     Dosage: 81 MG, ONCE DAILY
     Route: 048
  9. CYMBALTA [Concomitant]
     Dosage: 60 MG, 1X/DAY
  10. AGGRENOX [Concomitant]
     Dosage: UNK
     Route: 048
  11. VITAMIN C [Concomitant]
     Dosage: UNK
     Route: 048
  12. CALCIUM ACETATE [Concomitant]
     Dosage: UNK
     Route: 048
  13. ERGOCALCIFEROL [Concomitant]
     Dosage: 50000 IU, 1X/DAY
     Route: 048
  14. CATAPRES [Concomitant]
     Dosage: 0.1 MG, 2X/DAY
     Route: 048
  15. PRESERVISION [Concomitant]
     Route: 048
  16. PERSANTINE [Concomitant]
     Dosage: 50 MG, UNK
     Route: 048
  17. VALTREX [Concomitant]
     Indication: HERPES ZOSTER
  18. CLOTRIMAZOLE [Concomitant]
     Dosage: UNK, AS NEEDED
  19. SHINGLES VACCINE [Concomitant]
     Dosage: UNK
     Dates: start: 20070125
  20. PNEUMOVAX [Concomitant]
     Dosage: UNK
     Dates: start: 2009
  21. INFLUENZA VACCINE [Concomitant]
     Dosage: UNK
     Dates: start: 201209

REACTIONS (12)
  - Aneurysm [Unknown]
  - Cerebrovascular accident [Unknown]
  - Subarachnoid haemorrhage [Recovering/Resolving]
  - Basal cell carcinoma [Unknown]
  - Squamous cell carcinoma [Unknown]
  - Cervical vertebral fracture [Unknown]
  - Urinary incontinence [Unknown]
  - Hydrocephalus [Unknown]
  - Weight decreased [Unknown]
  - Oedema peripheral [Unknown]
  - Body height decreased [Unknown]
  - Balance disorder [Unknown]
